FAERS Safety Report 18673847 (Version 4)
Quarter: 2021Q3

REPORT INFORMATION
  Report Type: Spontaneous
  Country: US (occurrence: US)
  Receive Date: 20201228
  Receipt Date: 20210923
  Transmission Date: 20211014
  Serious: No
  Sender: FDA-Public Use
  Company Number: US-PFIZER INC-2020514340

PATIENT
  Sex: Female

DRUGS (10)
  1. TAXOTERE [Suspect]
     Active Substance: DOCETAXEL
     Dosage: UNK
     Dates: start: 201811, end: 201812
  2. HERCEPTIN [Concomitant]
     Active Substance: TRASTUZUMAB
     Indication: BREAST CANCER STAGE I
     Dosage: 709 MG
  3. DOCETAXEL. [Suspect]
     Active Substance: DOCETAXEL
     Indication: BREAST CANCER STAGE I
     Dosage: UNK
     Dates: start: 201811, end: 201812
  4. NEULASTA [Concomitant]
     Active Substance: PEGFILGRASTIM
     Dosage: UNK
  5. DECADRON [Concomitant]
     Active Substance: DEXAMETHASONE
     Dosage: UNK
  6. ZOFRAN [Concomitant]
     Active Substance: ONDANSETRON HYDROCHLORIDE
     Dosage: UNK
  7. PARAPLATIN [Concomitant]
     Active Substance: CARBOPLATIN
     Indication: BREAST CANCER STAGE I
     Dosage: 772 MG
  8. BENADRYL [Concomitant]
     Active Substance: DIPHENHYDRAMINE HYDROCHLORIDE
     Dosage: UNK
  9. DOCETAXEL. [Suspect]
     Active Substance: DOCETAXEL
     Dosage: 141.6 MG, CYCLIC (06 CYCLES FOR EVERY THREE WEEKS)
     Dates: start: 20190108, end: 20190219
  10. PEPCID [Concomitant]
     Active Substance: FAMOTIDINE
     Dosage: UNK

REACTIONS (6)
  - Madarosis [Unknown]
  - Blepharospasm [Unknown]
  - Alopecia [Unknown]
  - Lacrimation increased [Unknown]
  - Vision blurred [Unknown]
  - Eye injury [Unknown]
